FAERS Safety Report 9336414 (Version 1)
Quarter: 2013Q2

REPORT INFORMATION
  Report Type: Spontaneous
  Country: CA (occurrence: CA)
  Receive Date: 20130607
  Receipt Date: 20130607
  Transmission Date: 20140414
  Serious: Yes (Hospitalization)
  Sender: FDA-Public Use
  Company Number: CA-ELI_LILLY_AND_COMPANY-CA201305009109

PATIENT
  Age: 93 Year
  Sex: Female

DRUGS (9)
  1. FORTEO [Suspect]
     Indication: OSTEOPOROSIS
     Dosage: 20 UG, QD
     Route: 058
     Dates: end: 201304
  2. ACETAMINOPHEN [Concomitant]
     Dosage: 325 MG, QID
  3. CALCIUM [Concomitant]
     Dosage: 500 MG, QD
  4. ENALAPRIL [Concomitant]
     Dosage: 20 MG, QD
  5. METOPROLOL [Concomitant]
     Dosage: 25 MG, BID
  6. SENNOSIDE [Concomitant]
     Dosage: 17.2 MG, EACH EVENING
  7. VITAMIN B12 [Concomitant]
     Dosage: 1000 DF, QD
  8. VITAMIN D [Concomitant]
     Dosage: 1000 IU, BID
  9. MORPHINE [Concomitant]

REACTIONS (2)
  - Pelvic fracture [Recovered/Resolved]
  - Drug hypersensitivity [Recovered/Resolved]
